FAERS Safety Report 5892232-0 (Version None)
Quarter: 2008Q3

REPORT INFORMATION
  Report Type: 
  Country: None (occurrence: None)
  Receive Date: 20080919
  Receipt Date: 20080813
  Transmission Date: 20090109
  Serious: Yes (Other)
  Sender: FDA-Public Use
  Company Number: MPS1-1000089

PATIENT
  Age: 2 Year
  Sex: Male
  Weight: 12 kg

DRUGS (1)
  1. ALDURAZYME (TARONIDASE) CONCENTRATE FOR SOLUTION FOR INFUSION [Suspect]
     Indication: MUCOPOLYSACCHARIDOSIS I
     Dosage: 5.8 MG, 1X/W, UNK
     Dates: start: 20071008

REACTIONS (6)
  - ANAEMIA HAEMOLYTIC AUTOIMMUNE [None]
  - BONE MARROW TRANSPLANT [None]
  - EAR TUBE INSERTION [None]
  - INFUSION RELATED REACTION [None]
  - NEUTROPENIA [None]
  - PYREXIA [None]
